FAERS Safety Report 4933260-9 (Version None)
Quarter: 2006Q1

REPORT INFORMATION
  Report Type: 
  Country: None (occurrence: None)
  Receive Date: 20060306
  Receipt Date: 20051103
  Transmission Date: 20060701
  Serious: Yes (Hospitalization, Disabling)
  Sender: FDA-Public Use
  Company Number: US-MERCK-0511USA00801

PATIENT
  Age: 40 Year
  Sex: Male
  Weight: 86 kg

DRUGS (26)
  1. VIOXX [Suspect]
     Indication: ARTHRALGIA
     Route: 048
     Dates: start: 19990101, end: 20040101
  2. SEROQUEL [Concomitant]
     Route: 065
     Dates: end: 20020101
  3. WELLBUTRIN [Concomitant]
     Route: 065
     Dates: end: 20040101
  4. RELAFEN [Concomitant]
     Route: 065
  5. CIPRO [Concomitant]
     Route: 065
  6. ATROVENT [Concomitant]
     Route: 065
  7. ASPIRIN [Concomitant]
     Route: 065
     Dates: start: 20000401, end: 20050101
  8. METOPROLOL [Concomitant]
     Route: 065
     Dates: start: 20000101
  9. NAPROXEN [Concomitant]
     Route: 065
  10. DURAGESIC-100 [Concomitant]
     Route: 065
  11. RANITIDINE [Concomitant]
     Route: 065
  12. DARVOCET-N 50 [Concomitant]
     Route: 065
  13. ISORDIL [Concomitant]
     Route: 065
  14. ZOLPIDEM TARTRATE [Concomitant]
     Route: 065
  15. LEVOFLOXACIN [Concomitant]
     Route: 065
  16. PREVACID [Concomitant]
     Route: 065
  17. ALBUTEROL [Concomitant]
     Route: 065
  18. LISINOPRIL [Concomitant]
     Route: 065
     Dates: start: 19950101
  19. PROZAC [Concomitant]
     Route: 065
     Dates: start: 19860101, end: 20010101
  20. NEURONTIN [Concomitant]
     Route: 065
  21. ZYBAN [Concomitant]
     Route: 065
  22. HYTRIN [Concomitant]
     Route: 065
  23. NIZORAL [Concomitant]
     Route: 065
  24. VIAGRA [Concomitant]
     Route: 065
  25. NORVASC [Concomitant]
     Route: 065
     Dates: start: 20000101
  26. ELAVIL [Concomitant]
     Route: 065
     Dates: start: 19990101, end: 20050101

REACTIONS (12)
  - BARRETT'S OESOPHAGUS [None]
  - CARDIAC FAILURE CONGESTIVE [None]
  - CHRONIC OBSTRUCTIVE PULMONARY DISEASE [None]
  - CONSTIPATION [None]
  - DEPRESSION [None]
  - DYSPNOEA [None]
  - HEART RATE IRREGULAR [None]
  - LOSS OF CONSCIOUSNESS [None]
  - MICTURITION DISORDER [None]
  - MUSCULOSKELETAL CHEST PAIN [None]
  - MYOCARDIAL INFARCTION [None]
  - SMALL INTESTINAL OBSTRUCTION [None]
